FAERS Safety Report 17052439 (Version 1)
Quarter: 2019Q4

REPORT INFORMATION
  Report Type: Spontaneous
  Country: FR (occurrence: FR)
  Receive Date: 20191120
  Receipt Date: 20191120
  Transmission Date: 20200122
  Serious: Yes (Life-Threatening, Hospitalization)
  Sender: FDA-Public Use
  Company Number: FR-ZYDUS-043225

PATIENT
  Age: 38 Year
  Sex: Female
  Weight: 72 kg

DRUGS (9)
  1. LITHIUM. [Suspect]
     Active Substance: LITHIUM
     Indication: TOXICITY TO VARIOUS AGENTS
     Dosage: IN TOTAL
     Route: 048
     Dates: start: 20190306, end: 20190306
  2. NORDAZEPAM [Suspect]
     Active Substance: NORDAZEPAM
     Indication: TOXICITY TO VARIOUS AGENTS
     Dosage: IN TOTAL
     Route: 048
     Dates: start: 20190306, end: 20190306
  3. DIAZEPAM. [Suspect]
     Active Substance: DIAZEPAM
     Indication: TOXICITY TO VARIOUS AGENTS
     Dosage: IN TOTAL
     Route: 048
     Dates: start: 20190306, end: 20190306
  4. CYAMEMAZINE [Suspect]
     Active Substance: CYAMEMAZINE
     Indication: TOXICITY TO VARIOUS AGENTS
     Dosage: IN TOTAL
     Route: 048
     Dates: start: 20190306, end: 20190306
  5. QUETIAPINE/QUETIAPINE FUMARATE [Suspect]
     Active Substance: QUETIAPINE FUMARATE
     Indication: TOXICITY TO VARIOUS AGENTS
     Dosage: IN TOTAL
     Route: 048
     Dates: start: 20190306, end: 20190306
  6. LOPRAZOLAM/LOPRAZOLAM MESILATE [Suspect]
     Active Substance: LOPRAZOLAM MESILATE
     Indication: TOXICITY TO VARIOUS AGENTS
     Dosage: IN TOTAL
     Route: 048
     Dates: start: 20190306, end: 20190306
  7. NORFLOXACIN/NORFLOXACIN HYDROCHLORIDE [Suspect]
     Active Substance: NORFLOXACIN HYDROCHLORIDE
     Indication: TOXICITY TO VARIOUS AGENTS
     Dosage: IN TOTAL
     Route: 048
     Dates: start: 20190306, end: 20190306
  8. ESCITALOPRAM [Suspect]
     Active Substance: ESCITALOPRAM OXALATE
     Indication: TOXICITY TO VARIOUS AGENTS
     Route: 048
     Dates: start: 20190306, end: 20190306
  9. CYAMEMAZINE [Suspect]
     Active Substance: CYAMEMAZINE
     Indication: TOXICITY TO VARIOUS AGENTS
     Dosage: IN TOTAL
     Route: 048
     Dates: start: 20190306, end: 20190306

REACTIONS (6)
  - Pyramidal tract syndrome [Recovered/Resolved]
  - Bundle branch block right [Recovered/Resolved]
  - Muscle rigidity [Recovered/Resolved]
  - Bradypnoea [Recovered/Resolved]
  - Coma [Recovered/Resolved]
  - Serotonin syndrome [Recovered/Resolved]

NARRATIVE: CASE EVENT DATE: 20190306
